FAERS Safety Report 16459043 (Version 1)
Quarter: 2019Q2

REPORT INFORMATION
  Report Type: Spontaneous
  Country: AU (occurrence: AU)
  Receive Date: 20190620
  Receipt Date: 20190620
  Transmission Date: 20190711
  Serious: Yes (Other)
  Sender: FDA-Public Use
  Company Number: AU-TEVA-2019-AU-1064902

PATIENT
  Age: 63 Year
  Sex: Female

DRUGS (2)
  1. RISEDRONATE [Suspect]
     Active Substance: RISEDRONATE SODIUM
     Indication: OSTEOPOROSIS
     Dosage: RECEIVED 1 YEAR PRIOR TO THE PRESENTATION AT AN UNKNOWN DOSAGE AND HAD DISCONTINUED
     Route: 065
  2. RISEDRONATE [Suspect]
     Active Substance: RISEDRONATE SODIUM
     Indication: OSTEOPOROSIS
     Dosage: RE-STARTED 9 DAYS PRIOR TO THE PRESENTATION AND RECEIVED TWO DOSES, ONE WEEK APART
     Route: 065

REACTIONS (1)
  - Parophthalmia [Recovered/Resolved]
